FAERS Safety Report 7153230-2 (Version None)
Quarter: 2010Q4

REPORT INFORMATION
  Report Type: 
  Country: None (occurrence: None)
  Receive Date: 20101213
  Receipt Date: 20101202
  Transmission Date: 20110411
  Serious: Yes (Hospitalization, Other)
  Sender: FDA-Public Use
  Company Number: US-ROCHE-724522

PATIENT
  Sex: Male
  Weight: 90.7 kg

DRUGS (2)
  1. ACCUTANE [Suspect]
     Indication: ACNE
     Route: 048
     Dates: start: 19940101
  2. ACCUTANE [Suspect]
     Route: 048
     Dates: start: 19970501, end: 19971101

REACTIONS (13)
  - ABDOMINAL PAIN [None]
  - ANAL FISSURE [None]
  - ANAL FISTULA [None]
  - COLITIS ULCERATIVE [None]
  - CROHN'S DISEASE [None]
  - DEPRESSION [None]
  - INFLAMMATORY BOWEL DISEASE [None]
  - INTESTINAL OBSTRUCTION [None]
  - NAUSEA [None]
  - NEPHROLITHIASIS [None]
  - ORAL HERPES [None]
  - PERIRECTAL ABSCESS [None]
  - RECTAL HAEMORRHAGE [None]
